FAERS Safety Report 10098834 (Version 2)
Quarter: 2014Q2

REPORT INFORMATION
  Report Type: Report from Study
  Country: US (occurrence: US)
  Receive Date: 20140423
  Receipt Date: 20140423
  Transmission Date: 20141212
  Serious: Yes (Death, Hospitalization, Other)
  Sender: FDA-Public Use
  Company Number: US-BRISTOL-MYERS SQUIBB COMPANY-14216865

PATIENT
  Age: 58 Year
  Sex: Male

DRUGS (1)
  1. IPILIMUMAB [Suspect]
     Indication: MALIGNANT MELANOMA
     Dosage: INITIATED ON 26MAR08
     Route: 042
     Dates: start: 20080326, end: 20080507

REACTIONS (5)
  - Malignant neoplasm progression [Fatal]
  - Pleural effusion [Not Recovered/Not Resolved]
  - Pyrexia [Not Recovered/Not Resolved]
  - Oedema peripheral [Not Recovered/Not Resolved]
  - Staphylococcal infection [Recovered/Resolved with Sequelae]
